FAERS Safety Report 23223371 (Version 1)
Quarter: 2023Q4

REPORT INFORMATION
  Report Type: Report from Study
  Country: CA (occurrence: CA)
  Receive Date: 20231123
  Receipt Date: 20231123
  Transmission Date: 20240110
  Serious: Yes (Death)
  Sender: FDA-Public Use
  Company Number: CA-ABBVIE-5351103

PATIENT
  Sex: Male

DRUGS (1)
  1. BOTOX [Suspect]
     Active Substance: ONABOTULINUMTOXINA
     Indication: Muscle spasticity
     Dosage: TIME INTERVAL: AS NECESSARY: FREQUENCY TEXT: EVERY 3 TO 4 MONTHS
     Route: 030
     Dates: start: 20230731, end: 20230731

REACTIONS (2)
  - Death [Fatal]
  - General physical health deterioration [Unknown]

NARRATIVE: CASE EVENT DATE: 20230101
